FAERS Safety Report 15544203 (Version 1)
Quarter: 2018Q4

REPORT INFORMATION
  Report Type: Report from Study
  Country: None (occurrence: US)
  Receive Date: 20181024
  Receipt Date: 20181024
  Transmission Date: 20190205
  Serious: Yes (Other)
  Sender: FDA-Public Use
  Company Number: US-ABBVIE-18K-163-2499398-00

PATIENT
  Age: 51 Year
  Sex: Female
  Weight: 55.07 kg

DRUGS (3)
  1. HUMIRA [Suspect]
     Active Substance: ADALIMUMAB
     Indication: CROHN^S DISEASE
     Route: 058
     Dates: start: 2007
  2. HUMIRA [Suspect]
     Active Substance: ADALIMUMAB
     Route: 058
     Dates: start: 2009, end: 2018
  3. HUMIRA [Suspect]
     Active Substance: ADALIMUMAB
     Route: 058
     Dates: start: 20180923

REACTIONS (6)
  - Arthritis [Not Recovered/Not Resolved]
  - Cartilage injury [Recovered/Resolved]
  - Muscular weakness [Recovering/Resolving]
  - Infrapatellar fat pad inflammation [Recovered/Resolved]
  - Procedural pain [Recovered/Resolved]
  - Synovitis [Recovered/Resolved]

NARRATIVE: CASE EVENT DATE: 2018
